FAERS Safety Report 20704698 (Version 1)
Quarter: 2022Q2

REPORT INFORMATION
  Report Type: Spontaneous
  Country: US (occurrence: None)
  Receive Date: 20220412
  Receipt Date: 20220412
  Transmission Date: 20220721
  Serious: Yes (Disabling, Other)
  Sender: FDA-Public Use
  Company Number: None

PATIENT
  Age: 29 Year
  Sex: Female
  Weight: 56.25 kg

DRUGS (5)
  1. BUPRENORPHINE AND NALOXONE [Suspect]
     Active Substance: BUPRENORPHINE HYDROCHLORIDE\NALOXONE HYDROCHLORIDE
     Indication: Drug dependence
     Dosage: OTHER QUANTITY : 30 2MG;?FREQUENCY : TWICE A DAY;?
     Route: 060
     Dates: start: 20210403
  2. suboxane [Concomitant]
  3. MAGNESIUM [Concomitant]
  4. VITAMIN C [Concomitant]
     Active Substance: ASCORBIC ACID
  5. VITAMINS [Concomitant]
     Active Substance: VITAMINS

REACTIONS (1)
  - Dental caries [None]

NARRATIVE: CASE EVENT DATE: 20210404
